FAERS Safety Report 12385359 (Version 1)
Quarter: 2016Q2

REPORT INFORMATION
  Report Type: Spontaneous
  Country: US (occurrence: US)
  Receive Date: 20160519
  Receipt Date: 20160519
  Transmission Date: 20160815
  Serious: Yes (Other)
  Sender: FDA-Public Use
  Company Number: US-BAYER-2016-095341

PATIENT
  Age: 24 Year
  Sex: Female

DRUGS (1)
  1. MIRENA [Suspect]
     Active Substance: LEVONORGESTREL
     Dosage: 20 MCG/24HR, CONT
     Route: 015
     Dates: start: 20091124, end: 20140410

REACTIONS (6)
  - Post procedural haematoma [None]
  - Pregnancy with contraceptive device [None]
  - Drug ineffective [None]
  - Device difficult to use [None]
  - Procedural pain [None]
  - Device dislocation [None]

NARRATIVE: CASE EVENT DATE: 201306
